FAERS Safety Report 5980537-4 (Version None)
Quarter: 2008Q4

REPORT INFORMATION
  Report Type: 
  Country: None (occurrence: None)
  Receive Date: 20081205
  Receipt Date: 20080115
  Transmission Date: 20090506
  Serious: No
  Sender: FDA-Public Use
  Company Number: A0703270A

PATIENT
  Age: 65 Year
  Sex: Male

DRUGS (1)
  1. COMMIT [Suspect]
     Dates: start: 20080114, end: 20080114

REACTIONS (5)
  - CHEST DISCOMFORT [None]
  - GLOSSODYNIA [None]
  - HICCUPS [None]
  - HYPERHIDROSIS [None]
  - MALAISE [None]
